FAERS Safety Report 7781794-4 (Version None)
Quarter: 2011Q3

REPORT INFORMATION
  Report Type: 
  Country: None (occurrence: None)
  Receive Date: 20110927
  Receipt Date: 20110916
  Transmission Date: 20111222
  Serious: Yes (Other)
  Sender: FDA-Public Use
  Company Number: GB-GLAXOSMITHKLINE-B0747803A

PATIENT

DRUGS (1)
  1. PAROXETINE [Suspect]

REACTIONS (2)
  - AGGRESSION [None]
  - SUICIDE ATTEMPT [None]
